FAERS Safety Report 8910437 (Version 1)
Quarter: 2012Q4

REPORT INFORMATION
  Report Type: 
  Country: SE (occurrence: SE)
  Receive Date: 20121114
  Receipt Date: 20121114
  Transmission Date: 20130627
  Serious: Yes (Hospitalization)
  Sender: FDA-Public Use
  Company Number: SE-PFIZER INC-2012279792

PATIENT
  Age: 77 Year
  Sex: Female
  Weight: 72 kg

DRUGS (7)
  1. GENOTROPIN [Suspect]
     Indication: GROWTH HORMONE DEFICIENCY
     Dosage: 0.1 mg, 1x/day, 7 injections/week
     Route: 058
     Dates: start: 20051213
  2. LEVOTHYROXINE [Concomitant]
     Indication: TSH DECREASED
     Dosage: UNK
     Dates: start: 20050908
  3. LEVOTHYROXINE [Concomitant]
     Indication: PRIMARY HYPOTHYROIDISM
  4. HYDROCODONE [Concomitant]
     Indication: CORTISOL DECREASED
     Dosage: UNK
     Dates: start: 20070115
  5. SALURES [Concomitant]
     Indication: HYPERTENSION
     Dosage: UNK
     Dates: start: 20070115
  6. CIPRAMIL [Concomitant]
     Indication: DEPRESSION
     Dosage: UNK
     Dates: start: 20071210
  7. ATACAND [Concomitant]
     Indication: HYPERTENSION
     Dosage: UNK
     Dates: start: 20080115

REACTIONS (2)
  - Pyrexia [Unknown]
  - Asthenia [Unknown]
